FAERS Safety Report 13193719 (Version 1)
Quarter: 2017Q1

REPORT INFORMATION
  Report Type: Report from Study
  Country: NO (occurrence: NO)
  Receive Date: 20170207
  Receipt Date: 20170207
  Transmission Date: 20170428
  Serious: Yes (Other)
  Sender: FDA-Public Use
  Company Number: NO-BAYER-2017-000437

PATIENT
  Age: 39 Year
  Sex: Female

DRUGS (3)
  1. MIRENA [Suspect]
     Active Substance: LEVONORGESTREL
     Dosage: 20 MCG/24HR, CONT
     Route: 015
     Dates: start: 20161129, end: 20161129
  2. FLUOXETINE [Concomitant]
     Active Substance: FLUOXETINE HYDROCHLORIDE
     Dosage: 20 MG, QD
  3. SOBRIL [Concomitant]
     Active Substance: OXAZEPAM
     Dosage: 10 MG, PRN

REACTIONS (6)
  - Genital haemorrhage [Unknown]
  - Abdominal pain [None]
  - Complication of device insertion [Unknown]
  - Abdominal infection [None]
  - Procedural pain [Unknown]
  - Abdominal discomfort [None]

NARRATIVE: CASE EVENT DATE: 20161116
